FAERS Safety Report 5009536-6 (Version None)
Quarter: 2006Q2

REPORT INFORMATION
  Report Type: 
  Country: None (occurrence: None)
  Receive Date: 20060522
  Receipt Date: 20060516
  Transmission Date: 20061013
  Serious: Yes (Other)
  Sender: FDA-Public Use
  Company Number: S06-USA-01891-01

PATIENT

DRUGS (1)
  1. LEXAPRO [Suspect]

REACTIONS (2)
  - DRUG EXPOSURE VIA BREAST MILK [None]
  - POLYCYTHAEMIA [None]
